FAERS Safety Report 7165804-3 (Version None)
Quarter: 2010Q4

REPORT INFORMATION
  Report Type: 
  Country: None (occurrence: None)
  Receive Date: 20101215
  Receipt Date: 20100104
  Transmission Date: 20110411
  Serious: No
  Sender: FDA-Public Use
  Company Number: US-AMGEN-KDL383535

PATIENT

DRUGS (11)
  1. ENBREL [Suspect]
     Indication: PRODUCT USED FOR UNKNOWN INDICATION
     Dosage: 50 MG, QWK
     Route: 058
  2. SIMVASTATIN [Concomitant]
     Dosage: 20 MG, UNK
     Route: 048
  3. METHOTREXATE [Concomitant]
     Dosage: 2.5 MG, UNK
     Route: 048
  4. PREDNISONE [Concomitant]
     Dosage: 5 MG, UNK
     Route: 048
  5. FEXOFENADINE HCL [Concomitant]
     Dosage: 180 MG, UNK
     Route: 048
  6. FOLIC ACID [Concomitant]
     Dosage: 1 MG, UNK
     Route: 048
  7. FLUTICASONE/SALMETEROL [Concomitant]
     Dosage: UNK UNK, UNK
  8. HYDRALAZINE [Concomitant]
     Dosage: 25 MG, UNK
     Route: 048
  9. HYDROXYZINE [Concomitant]
     Dosage: 25 MG, UNK
     Route: 048
  10. AMITRIPTYLINE [Concomitant]
     Dosage: 150 MG, UNK
     Route: 048
  11. ESCITALOPRAM [Concomitant]
     Dosage: 20 MG, UNK
     Route: 048

REACTIONS (3)
  - INJECTION SITE ERYTHEMA [None]
  - INJECTION SITE PRURITUS [None]
  - INJECTION SITE SWELLING [None]
